FAERS Safety Report 5016540-0 (Version None)
Quarter: 2006Q2

REPORT INFORMATION
  Report Type: 
  Country: None (occurrence: None)
  Receive Date: 20060602
  Receipt Date: 20060110
  Transmission Date: 20061013
  Serious: Yes (Hospitalization)
  Sender: FDA-Public Use
  Company Number: JP-SP-2006-00099

PATIENT
  Age: 86 Year
  Sex: Male

DRUGS (11)
  1. IMMUCYST [Suspect]
     Indication: BLADDER CANCER
     Route: 043
     Dates: start: 20051114, end: 20051212
  2. IMMUCYST [Suspect]
     Route: 043
     Dates: start: 20051114, end: 20051212
  3. IMMUCYST [Suspect]
     Route: 043
     Dates: start: 20051114, end: 20051212
  4. OXYBUTYNIN HYDROCHLORIDE [Suspect]
     Indication: NEUROGENIC BLADDER
     Dosage: 1 TAB
     Route: 048
     Dates: start: 20050513, end: 20051215
  5. GOSHA-JINKI-GAN (HERBAL MEDICINE) [Concomitant]
     Dates: start: 20050513, end: 20060120
  6. NAFTOPIDIL [Concomitant]
     Dates: start: 20050513, end: 20060120
  7. CHINESE MEDICINE [Concomitant]
     Dates: start: 20050513, end: 20060120
  8. WARFARIN SODIUM [Concomitant]
     Dates: start: 20050513, end: 20060120
  9. BERAPROST SODIUM [Concomitant]
     Dates: start: 20050513, end: 20060120
  10. FAMOTIDINE [Concomitant]
     Dates: start: 20050513, end: 20060120
  11. LEUPROLIDE ACETATE [Concomitant]
     Dates: start: 20020322, end: 20060120

REACTIONS (7)
  - ANURIA [None]
  - BLOOD CREATININE INCREASED [None]
  - BLOOD UREA INCREASED [None]
  - DYSURIA [None]
  - EPIDIDYMITIS [None]
  - PYREXIA [None]
  - RENAL IMPAIRMENT [None]
